FAERS Safety Report 25511910 (Version 1)
Quarter: 2025Q3

REPORT INFORMATION
  Report Type: Spontaneous
  Country: US (occurrence: US)
  Receive Date: 20250703
  Receipt Date: 20250703
  Transmission Date: 20251020
  Serious: No
  Sender: RADIUS PHARM
  Company Number: US-RADIUS HEALTH INC.-2024US007403

PATIENT
  Age: 67 Year
  Sex: Female

DRUGS (4)
  1. TYMLOS [Suspect]
     Active Substance: ABALOPARATIDE
     Indication: Senile osteoporosis
     Route: 058
     Dates: start: 20240819
  2. ATORVASTATIN [Concomitant]
     Active Substance: ATORVASTATIN
     Indication: Product used for unknown indication
  3. ESCITALOPRAM [Concomitant]
     Active Substance: ESCITALOPRAM OXALATE
     Indication: Product used for unknown indication
  4. ESZOPICLONE [Concomitant]
     Active Substance: ESZOPICLONE
     Indication: Product used for unknown indication

REACTIONS (7)
  - Head discomfort [Recovered/Resolved]
  - Unevaluable event [Recovered/Resolved]
  - Injection site pain [Recovered/Resolved]
  - Injection site erythema [Recovered/Resolved]
  - Injection site haemorrhage [Recovered/Resolved]
  - Wrong technique in product usage process [Recovered/Resolved]
  - Injection site irritation [Recovered/Resolved]

NARRATIVE: CASE EVENT DATE: 20240801
